FAERS Safety Report 9520910 (Version 1)
Quarter: 2013Q1

REPORT INFORMATION
  Report Type: Spontaneous
  Country: US (occurrence: None)
  Receive Date: 20130305
  Receipt Date: 20130305
  Transmission Date: 20140127
  Serious: No
  Sender: FDA-Public Use
  Company Number: 163-21880-12012465

PATIENT
  Age: 80 Year
  Sex: Female

DRUGS (5)
  1. REVLIMID (LENALIDOMIDE) (10 MILLIGRAM CAPSULES) [Suspect]
     Dosage: 10MG, 21 IN 28 D, PO
     Route: 048
     Dates: start: 20111104
  2. CENTRUM SILVER (CENTRUM SILVER) [Concomitant]
  3. CENTRUM CARDIO (MULTIVITAMINS, COMBINATIONS) [Concomitant]
  4. DEXAMETHASONE (DEXAMETHASONE) [Concomitant]
  5. CALCIUM (CALCIUM) [Concomitant]

REACTIONS (8)
  - Pruritus [None]
  - Fatigue [None]
  - Neuropathy peripheral [None]
  - Constipation [None]
  - Oedema peripheral [None]
  - Dysphonia [None]
  - Nasal congestion [None]
  - Erythema [None]
